FAERS Safety Report 8357800-5 (Version None)
Quarter: 2012Q2

REPORT INFORMATION
  Report Type: 
  Country: None (occurrence: None)
  Receive Date: 20120514
  Receipt Date: 20110412
  Transmission Date: 20120825
  Serious: No
  Sender: FDA-Public Use
  Company Number: US-ALEXION-A201100518

PATIENT
  Sex: Female

DRUGS (3)
  1. COUMADIN [Suspect]
     Dosage: 2.5 MG QOD
  2. COUMADIN [Suspect]
     Dosage: 5 MG QOD
  3. SOLIRIS [Suspect]
     Indication: PAROXYSMAL NOCTURNAL HAEMOGLOBINURIA
     Dosage: UNK
     Route: 042
     Dates: start: 20110316

REACTIONS (5)
  - VESSEL PUNCTURE SITE HAEMATOMA [None]
  - LIP DRY [None]
  - DRY SKIN [None]
  - HYPOAESTHESIA ORAL [None]
  - CHAPPED LIPS [None]
